FAERS Safety Report 10175998 (Version 2)
Quarter: 2014Q2

REPORT INFORMATION
  Report Type: Report from Study
  Country: US (occurrence: US)
  Receive Date: 20140516
  Receipt Date: 20140516
  Transmission Date: 20141212
  Serious: Yes (Hospitalization)
  Sender: FDA-Public Use
  Company Number: US-ROCHE-1384765

PATIENT
  Sex: Female

DRUGS (4)
  1. PEGASYS [Suspect]
     Indication: CHRONIC HEPATITIS C
     Dosage: FOR 12 WEEKS OF TREATMENT
     Route: 058
     Dates: start: 20140220
  2. RIBAPAK [Suspect]
     Indication: CHRONIC HEPATITIS C
     Dosage: FOR 12 WEEKS OF TREATMENT
     Route: 065
     Dates: start: 20140220
  3. RIBAPAK [Suspect]
     Dosage: FOR 12 WEEKS OF TREATMENT
     Route: 065
     Dates: start: 20140220
  4. SOVALDI [Suspect]
     Indication: CHRONIC HEPATITIS C
     Dosage: FOR 12 WEEKS OF TREATMENT
     Route: 065
     Dates: start: 20140220

REACTIONS (5)
  - Syncope [Unknown]
  - Haemoglobin decreased [Unknown]
  - Blood glucose increased [Unknown]
  - Fatigue [Recovering/Resolving]
  - Limb discomfort [Unknown]
